FAERS Safety Report 7275723-X (Version None)
Quarter: 2011Q1

REPORT INFORMATION
  Report Type: 
  Country: None (occurrence: None)
  Receive Date: 20110202
  Receipt Date: 20110202
  Transmission Date: 20110831
  Serious: Yes (Life-Threatening)
  Sender: FDA-Public Use
  Company Number: None

PATIENT
  Age: 69 Year
  Sex: Male
  Weight: 82.1011 kg

DRUGS (1)
  1. SEROQUEL [Suspect]
     Indication: ENCEPHALOPATHY
     Dosage: 25 MG EVERY 12 HOURS PO
     Route: 048
     Dates: start: 20110104, end: 20110122

REACTIONS (4)
  - TORSADE DE POINTES [None]
  - ATRIAL FIBRILLATION [None]
  - WOUND INFECTION [None]
  - VENTRICULAR TACHYCARDIA [None]
